FAERS Safety Report 8849354 (Version 1)
Quarter: 2012Q4

REPORT INFORMATION
  Report Type: Spontaneous
  Country: US (occurrence: None)
  Receive Date: 20121018
  Receipt Date: 20121018
  Transmission Date: 20130627
  Serious: No
  Sender: FDA-Public Use
  Company Number: None

PATIENT
  Age: 69 Year
  Sex: Male
  Weight: 105.4 kg

DRUGS (2)
  1. BUPROPION [Suspect]
     Indication: DIFFICULTY SLEEPING
     Route: 048
     Dates: start: 20120814, end: 20120824
  2. BUPROPION [Suspect]
     Indication: SEXUAL DESIRE DECREASED
     Route: 048
     Dates: start: 20120814, end: 20120824

REACTIONS (6)
  - Petit mal epilepsy [None]
  - Chest pain [None]
  - Hyperhidrosis [None]
  - Tachycardia [None]
  - Delirium [None]
  - Somnolence [None]
